FAERS Safety Report 9619588 (Version 2)
Quarter: 2013Q4

REPORT INFORMATION
  Report Type: Spontaneous
  Country: CN (occurrence: CN)
  Receive Date: 20131014
  Receipt Date: 20131114
  Transmission Date: 20140711
  Serious: Yes (Death, Other)
  Sender: FDA-Public Use
  Company Number: CN-SA-2013SA101812

PATIENT
  Age: 50 Year
  Sex: Male
  Weight: 75 kg

DRUGS (14)
  1. THYMOGLOBULIN [Suspect]
     Indication: APLASTIC ANAEMIA
     Dosage: DAY 1-5
     Route: 042
     Dates: start: 20130801, end: 20130805
  2. THYMOGLOBULIN [Suspect]
     Indication: APLASTIC ANAEMIA
     Dosage: D2-5; FAC TREATMENT
     Route: 065
     Dates: start: 20130824, end: 20130827
  3. CICLOSPORIN [Concomitant]
     Indication: APLASTIC ANAEMIA
     Route: 042
     Dates: start: 20130802, end: 20130805
  4. CICLOSPORIN [Concomitant]
     Indication: APLASTIC ANAEMIA
     Route: 042
     Dates: start: 20130806, end: 20130827
  5. TACROLIMUS [Concomitant]
     Indication: APLASTIC ANAEMIA
     Route: 042
     Dates: start: 20130828, end: 20130904
  6. TACROLIMUS [Concomitant]
     Indication: APLASTIC ANAEMIA
     Route: 042
     Dates: start: 20130905, end: 20130905
  7. PLATELET [Concomitant]
     Dates: start: 20130802, end: 20130821
  8. PLATELET [Concomitant]
     Dates: start: 20130826, end: 20130826
  9. PLATELET [Concomitant]
     Dates: start: 20130828, end: 20130903
  10. RED BLOOD CELLS [Concomitant]
     Dates: start: 20130823, end: 20130823
  11. RED BLOOD CELLS [Concomitant]
     Dates: start: 20130826, end: 20130826
  12. RED BLOOD CELLS [Concomitant]
     Dates: start: 20130828, end: 20130903
  13. CYCLOPHOSPHAMIDE [Concomitant]
     Dosage: FAC TREATMENT
     Dates: start: 20130826, end: 20130827
  14. FLUDARABINE [Concomitant]
     Dosage: FAC TREATMENT
     Dates: start: 20130823, end: 20130826

REACTIONS (16)
  - Circulatory collapse [Fatal]
  - Respiratory failure [Fatal]
  - Dyspnoea [Fatal]
  - Tachypnoea [Fatal]
  - Cardiac failure acute [Fatal]
  - Hypotension [Fatal]
  - Renal failure acute [Unknown]
  - Hypokalaemia [Unknown]
  - Infection [Unknown]
  - Body temperature increased [Unknown]
  - Mouth ulceration [Unknown]
  - Pharyngeal oedema [Unknown]
  - Dysphonia [Unknown]
  - Upper respiratory tract congestion [Unknown]
  - Body temperature increased [Recovered/Resolved]
  - Tachycardia [Unknown]
